FAERS Safety Report 4748609-X (Version None)
Quarter: 2005Q3

REPORT INFORMATION
  Report Type: 
  Country: None (occurrence: None)
  Receive Date: 20050818
  Receipt Date: 20050817
  Transmission Date: 20060218
  Serious: No
  Sender: FDA-Public Use
  Company Number: 005452

PATIENT
  Age: 45 Year
  Sex: Female
  Weight: 86.2 kg

DRUGS (1)
  1. TAMOXIFEN CITRATE [Suspect]
     Indication: BREAST CANCER
     Dosage: 1.00 TABLET, QD, ORAL
     Route: 048
     Dates: start: 20010404, end: 20050813

REACTIONS (7)
  - ENDOMETRIAL HYPERTROPHY [None]
  - MENSTRUATION IRREGULAR [None]
  - OVARIAN CYST [None]
  - RASH [None]
  - UTERINE POLYP [None]
  - WEIGHT DECREASED [None]
  - WEIGHT INCREASED [None]
